FAERS Safety Report 8233423-3 (Version None)
Quarter: 2012Q1

REPORT INFORMATION
  Report Type: 
  Country: None (occurrence: None)
  Receive Date: 20120321
  Receipt Date: 20110224
  Transmission Date: 20120608
  Serious: Yes (Life-Threatening)
  Sender: FDA-Public Use
  Company Number: 839054

PATIENT
  Age: 25 Year
  Sex: Female

DRUGS (4)
  1. OXYCONTIN [Concomitant]
  2. SUBOXONE [Concomitant]
  3. HEROIN [Concomitant]
  4. HEPARIN SODIUM [Suspect]
     Indication: PRODUCT USED FOR UNKNOWN INDICATION

REACTIONS (2)
  - SUBARACHNOID HAEMORRHAGE [None]
  - BRAIN DEATH [None]
